FAERS Safety Report 15904768 (Version 2)
Quarter: 2019Q1

REPORT INFORMATION
  Report Type: Spontaneous
  Country: JP (occurrence: JP)
  Receive Date: 20190204
  Receipt Date: 20190207
  Transmission Date: 20190417
  Serious: Yes (Hospitalization, Other)
  Sender: FDA-Public Use
  Company Number: JP-ROCHE-2254806

PATIENT
  Age: 61 Year
  Sex: Male

DRUGS (3)
  1. XELODA [Suspect]
     Active Substance: CAPECITABINE
     Indication: RECTAL CANCER
     Dosage: DOSAGE IS UNCERTAIN.
     Route: 048
     Dates: start: 201509
  2. AVASTIN [Suspect]
     Active Substance: BEVACIZUMAB
     Indication: RECTAL CANCER
     Dosage: DOSAGE IS UNCERTAIN.
     Route: 041
     Dates: start: 201509
  3. CETUXIMAB. [Concomitant]
     Active Substance: CETUXIMAB

REACTIONS (4)
  - Oesophageal varices haemorrhage [Unknown]
  - Infection [Recovering/Resolving]
  - Sepsis [Unknown]
  - Tumour invasion [Recovering/Resolving]

NARRATIVE: CASE EVENT DATE: 201611
